FAERS Safety Report 23635697 (Version 1)
Quarter: 2024Q1

REPORT INFORMATION
  Report Type: Report from Study
  Country: US (occurrence: US)
  Receive Date: 20240315
  Receipt Date: 20240315
  Transmission Date: 20240409
  Serious: Yes (Hospitalization)
  Sender: FDA-Public Use
  Company Number: US-JNJFOC-20240247817

PATIENT
  Age: 4 Decade
  Sex: Female

DRUGS (2)
  1. EPOPROSTENOL SODIUM [Suspect]
     Active Substance: EPOPROSTENOL SODIUM
     Indication: Pulmonary arterial hypertension
     Route: 042
     Dates: start: 202310
  2. SODIUM CHLORIDE [Concomitant]
     Active Substance: SODIUM CHLORIDE

REACTIONS (4)
  - Device occlusion [Recovered/Resolved]
  - Catheter placement [Recovered/Resolved]
  - Product administration interrupted [Unknown]
  - Device alarm issue [Recovered/Resolved]
